FAERS Safety Report 7646857-2 (Version None)
Quarter: 2011Q3

REPORT INFORMATION
  Report Type: 
  Country: None (occurrence: None)
  Receive Date: 20110729
  Receipt Date: 20110729
  Transmission Date: 20111222
  Serious: Yes (Disabling)
  Sender: FDA-Public Use
  Company Number: None

PATIENT
  Sex: Male
  Weight: 60.3284 kg

DRUGS (2)
  1. FENTANYL-100 [Suspect]
     Indication: PAIN MANAGEMENT
     Dosage: 50 MCG/HR 72 HR TRANSDERMAL; 75 MCG/HR 72 HR TRANSDERMAL
     Route: 062
     Dates: start: 20101201
  2. FENTANYL-100 [Suspect]
     Indication: PAIN MANAGEMENT
     Dosage: 50 MCG/HR 72 HR TRANSDERMAL; 75 MCG/HR 72 HR TRANSDERMAL
     Route: 062
     Dates: start: 20070101, end: 20100101

REACTIONS (1)
  - PAIN [None]
